FAERS Safety Report 4819515-7 (Version None)
Quarter: 2005Q4

REPORT INFORMATION
  Report Type: 
  Country: None (occurrence: None)
  Receive Date: 20051031
  Receipt Date: 20050622
  Transmission Date: 20060501
  Serious: No
  Sender: FDA-Public Use
  Company Number: 2005PV000101

PATIENT
  Age: 45 Year
  Sex: Male
  Weight: 111.1313 kg

DRUGS (7)
  1. SYMLIN [Suspect]
     Indication: DIABETES MELLITUS INSULIN-DEPENDENT
     Dosage: 45 UG; TID; SC
     Route: 058
     Dates: start: 20050614
  2. NOVOLOG [Concomitant]
  3. ZOCOR [Concomitant]
  4. COZAAR [Concomitant]
  5. DIAZEPAM [Concomitant]
  6. ZYPREXA [Concomitant]
  7. CYMBALTA [Concomitant]

REACTIONS (3)
  - DECREASED APPETITE [None]
  - NAUSEA [None]
  - WEIGHT DECREASED [None]
